FAERS Safety Report 11238070 (Version 1)
Quarter: 2015Q3

REPORT INFORMATION
  Report Type: Report from Study
  Country: FR (occurrence: FR)
  Receive Date: 20150703
  Receipt Date: 20150703
  Transmission Date: 20151125
  Serious: Yes (Disabling)
  Sender: FDA-Public Use
  Company Number: FR-009507513-1507FRA000015

PATIENT
  Age: 81 Year
  Sex: Female
  Weight: 50 kg

DRUGS (1)
  1. PEMBROLIZUMAB. [Suspect]
     Active Substance: PEMBROLIZUMAB
     Indication: METASTATIC MALIGNANT MELANOMA
     Dosage: 2 MG/KG, FREQUENCY NOT REPORTED
     Dates: start: 20150605

REACTIONS (2)
  - Malignant neoplasm progression [Unknown]
  - Oedema [Unknown]

NARRATIVE: CASE EVENT DATE: 20150615
